FAERS Safety Report 7142283-3 (Version None)
Quarter: 2010Q4

REPORT INFORMATION
  Report Type: 
  Country: None (occurrence: None)
  Receive Date: 20101207
  Receipt Date: 20101124
  Transmission Date: 20110411
  Serious: Yes (Other)
  Sender: FDA-Public Use
  Company Number: US-PFIZER INC-2010159178

PATIENT
  Sex: Female

DRUGS (4)
  1. LYRICA [Suspect]
     Indication: ADVERSE DRUG REACTION
     Dosage: 100 MG, 3X/DAY
     Route: 048
     Dates: start: 20101001, end: 20100101
  2. CYTOXAN [Concomitant]
     Indication: BREAST CANCER
     Dosage: UNK
  3. TRASTUZUMAB [Concomitant]
     Indication: BREAST CANCER
     Dosage: UNK
  4. FASLODEX [Concomitant]
     Indication: BREAST CANCER
     Dosage: UNK

REACTIONS (2)
  - BLINDNESS UNILATERAL [None]
  - VISUAL ACUITY REDUCED [None]
